FAERS Safety Report 7199773-7 (Version None)
Quarter: 2010Q4

REPORT INFORMATION
  Report Type: 
  Country: None (occurrence: None)
  Receive Date: 20101228
  Receipt Date: 20100714
  Transmission Date: 20110411
  Serious: No
  Sender: FDA-Public Use
  Company Number: US-KINGPHARMUSA00001-K201000894

PATIENT
  Age: 81 Year
  Sex: Male
  Weight: 77.098 kg

DRUGS (8)
  1. CORGARD [Suspect]
     Indication: HYPERTENSION
     Dosage: 40 MG, QD
     Route: 048
     Dates: start: 19900101, end: 20080101
  2. CORGARD [Suspect]
     Dosage: 80 MG, QD
     Route: 048
     Dates: start: 20080101
  3. CORGARD [Suspect]
     Dosage: 40 MG, QD
     Route: 048
     Dates: end: 20100601
  4. CORGARD [Suspect]
     Dosage: 80 MG, QD
     Route: 048
     Dates: start: 20100601
  5. DIOVAN [Concomitant]
     Indication: BLOOD PRESSURE INCREASED
     Dosage: UNK, QD
     Route: 048
  6. ACETAMINOPHEN [Concomitant]
     Indication: PAIN
     Dosage: UNK, PRN
     Route: 048
  7. IBUPROFEN [Concomitant]
     Indication: PAIN
     Dosage: UNK, PRN
     Route: 048
  8. ASPIRIN [Concomitant]
     Indication: PAIN
     Dosage: UNK, PRN
     Route: 048

REACTIONS (1)
  - PALPITATIONS [None]
